FAERS Safety Report 9226094 (Version 1)
Quarter: 2013Q2

REPORT INFORMATION
  Report Type: Spontaneous
  Country: GB (occurrence: GB)
  Receive Date: 20130411
  Receipt Date: 20130411
  Transmission Date: 20140414
  Serious: Yes (Hospitalization, Other)
  Sender: FDA-Public Use
  Company Number: GB-TEVA-397383ISR

PATIENT
  Age: 38 Year
  Sex: Female

DRUGS (2)
  1. AMITRIPTYLINE [Suspect]
     Indication: ARTHRALGIA
     Route: 048
     Dates: start: 20130307, end: 20130308
  2. NAPROXEN [Concomitant]
     Indication: ARTHRALGIA
     Dosage: 1000 MILLIGRAM DAILY;
     Route: 048
     Dates: start: 20130207, end: 20130319

REACTIONS (4)
  - Alanine aminotransferase increased [Not Recovered/Not Resolved]
  - Aspartate aminotransferase increased [Not Recovered/Not Resolved]
  - Loss of consciousness [Unknown]
  - Pulse absent [Unknown]
